FAERS Safety Report 6885577-9 (Version None)
Quarter: 2010Q3

REPORT INFORMATION
  Report Type: 
  Country: None (occurrence: None)
  Receive Date: 20100729
  Receipt Date: 20090114
  Transmission Date: 20110219
  Serious: No
  Sender: FDA-Public Use
  Company Number: US-PFIZER INC-2008091366

PATIENT
  Sex: Female
  Weight: 54.545 kg

DRUGS (3)
  1. CELEBREX [Suspect]
     Indication: ARTHRITIS
     Dates: start: 20070101
  2. PREVACID [Interacting]
  3. SYNTHROID [Concomitant]
     Indication: HYPOTHYROIDISM

REACTIONS (4)
  - ARTHRALGIA [None]
  - DIARRHOEA [None]
  - DRUG INTERACTION [None]
  - FEELING ABNORMAL [None]
